FAERS Safety Report 11266253 (Version 1)
Quarter: 2015Q3

REPORT INFORMATION
  Report Type: Spontaneous
  Country: US (occurrence: US)
  Receive Date: 20150713
  Receipt Date: 20150713
  Transmission Date: 20151125
  Serious: No
  Sender: FDA-Public Use
  Company Number: US-TEVA-576581USA

PATIENT
  Sex: Female

DRUGS (1)
  1. COPAXONE [Suspect]
     Active Substance: GLATIRAMER ACETATE
     Indication: MULTIPLE SCLEROSIS
     Dosage: UNKNOWN FORM STRENGTH

REACTIONS (7)
  - Malaise [Unknown]
  - Alopecia [Unknown]
  - Erythema [Unknown]
  - Skin erosion [Unknown]
  - Adverse event [Unknown]
  - Weight decreased [Unknown]
  - Contusion [Unknown]
